FAERS Safety Report 4647314-8 (Version None)
Quarter: 2005Q2

REPORT INFORMATION
  Report Type: 
  Country: None (occurrence: None)
  Receive Date: 20050426
  Receipt Date: 20050413
  Transmission Date: 20051028
  Serious: Yes (Hospitalization)
  Sender: FDA-Public Use
  Company Number: 2005061884

PATIENT
  Age: 68 Year
  Sex: Female
  Weight: 61.2356 kg

DRUGS (20)
  1. CELEBREX [Suspect]
     Indication: ARTHRITIS
     Dosage: ORAL
     Route: 048
     Dates: start: 20030101
  2. BEXTRA [Suspect]
     Indication: ARTHRITIS
     Dosage: 20 MG (20 MG, 1 IN 1 D), ORAL
     Route: 048
     Dates: start: 20030101
  3. ROFECOXIB [Suspect]
     Indication: ARTHRITIS
     Dosage: 25 MG (25 MG, 1 IN 1 D), ORAL
     Route: 048
     Dates: start: 20040101
  4. LEVOTHYROXINE SODIUM [Concomitant]
  5. TAMOXIFEN (TAMOXIFEN) [Concomitant]
  6. ANASTROZOLE (ANASTROZOLE) [Concomitant]
  7. GLYBURIDE [Concomitant]
  8. METFORMIN HCL [Concomitant]
  9. PIOGLITAZONE HCL [Concomitant]
  10. INSULIN ZINC SUSPENSION(INSULIN ZINC SUSPENSION) [Concomitant]
  11. INSULIN ASPART (INSULIN ASPART) [Concomitant]
  12. INSULIN GLARGINE (INSULIN GLARGINE) [Concomitant]
  13. ASPIRIN [Concomitant]
  14. VITAMINS (VITAMINS) [Concomitant]
  15. TOCOPHEROL (TOCOPEROL) [Concomitant]
  16. ASASANTIN (ACETYLSALICYLIC ACID, DIPYRIDAMOLE) [Concomitant]
  17. FOLIC ACID [Concomitant]
  18. CHONDROITIN/GLUCOSAMINE (CHONDROITIN, GLUCOSAMINE) [Concomitant]
  19. OMEPRAZOLE [Concomitant]
  20. SUCRALFATE [Concomitant]

REACTIONS (4)
  - ARTHRITIS INFECTIVE [None]
  - CEREBROVASCULAR ACCIDENT [None]
  - DIABETES MELLITUS INADEQUATE CONTROL [None]
  - STAPHYLOCOCCAL INFECTION [None]
